APPROVED DRUG PRODUCT: NEOMYCIN SULFATE
Active Ingredient: NEOMYCIN SULFATE
Strength: 500MG
Dosage Form/Route: TABLET;ORAL
Application: A204435 | Product #001
Applicant: CHARTWELL MOLECULAR HOLDINGS LLC
Approved: Jun 10, 2016 | RLD: No | RS: No | Type: DISCN